FAERS Safety Report 19592841 (Version 4)
Quarter: 2021Q3

REPORT INFORMATION
  Report Type: Spontaneous
  Country: US (occurrence: US)
  Receive Date: 20210722
  Receipt Date: 20210910
  Transmission Date: 20211014
  Serious: No
  Sender: FDA-Public Use
  Company Number: US-BEH-2021134167

PATIENT
  Sex: Female

DRUGS (1)
  1. HIZENTRA [Suspect]
     Active Substance: HUMAN IMMUNOGLOBULIN G
     Indication: IMMUNODEFICIENCY
     Dosage: 7 GRAM, QW
     Route: 058

REACTIONS (3)
  - Incorrect drug administration rate [Not Recovered/Not Resolved]
  - No adverse event [Not Recovered/Not Resolved]
  - Infusion site scar [Not Recovered/Not Resolved]

NARRATIVE: CASE EVENT DATE: 2021
